FAERS Safety Report 5441367-5 (Version None)
Quarter: 2007Q3

REPORT INFORMATION
  Report Type: 
  Country: None (occurrence: None)
  Receive Date: 20070903
  Receipt Date: 20070829
  Transmission Date: 20080115
  Serious: Yes (Death)
  Sender: FDA-Public Use
  Company Number: PHHO2007JP14356

PATIENT
  Age: 76 Year
  Sex: Male

DRUGS (3)
  1. ADALAT [Suspect]
  2. ALLOPURINOL [Suspect]
  3. DIOVAN [Suspect]
     Indication: HYPERTENSION
     Dosage: 80 MG/DAY
     Route: 048
     Dates: start: 20030724

REACTIONS (2)
  - AORTIC ANEURYSM [None]
  - AORTIC ANEURYSM RUPTURE [None]
